FAERS Safety Report 24294227 (Version 1)
Quarter: 2024Q3

REPORT INFORMATION
  Report Type: Spontaneous
  Country: US (occurrence: US)
  Receive Date: 20240906
  Receipt Date: 20240906
  Transmission Date: 20241016
  Serious: No
  Sender: DOMPE FARMACEUTICI
  Company Number: US-FARMAPROD-202405-2004

PATIENT
  Sex: Male

DRUGS (10)
  1. OXERVATE [Suspect]
     Active Substance: CENEGERMIN-BKBJ
     Indication: Neurotrophic keratopathy
     Route: 047
     Dates: start: 20240516
  2. OXERVATE [Suspect]
     Active Substance: CENEGERMIN-BKBJ
  3. LYRICA [Concomitant]
     Active Substance: PREGABALIN
  4. LISINOPRIL [Concomitant]
     Active Substance: LISINOPRIL
  5. PREVACID [Concomitant]
     Active Substance: LANSOPRAZOLE
     Dosage: RAPID
  6. ALPRAZOLAM [Concomitant]
     Active Substance: ALPRAZOLAM
  7. FLECAINIDE ACETATE [Concomitant]
     Active Substance: FLECAINIDE ACETATE
  8. PREDNISONE [Concomitant]
     Active Substance: PREDNISONE
  9. UNSPECIFIED INGREDIENT [Concomitant]
     Active Substance: UNSPECIFIED INGREDIENT
  10. CIPROFLOXACIN HYDROCHLORIDE [Concomitant]
     Active Substance: CIPROFLOXACIN HYDROCHLORIDE

REACTIONS (4)
  - Drug ineffective [Unknown]
  - Therapy partial responder [Unknown]
  - Periorbital pain [Not Recovered/Not Resolved]
  - Weight increased [Unknown]
